FAERS Safety Report 10129583 (Version 1)
Quarter: 2014Q2

REPORT INFORMATION
  Report Type: Spontaneous
  Country: US (occurrence: None)
  Receive Date: 20140425
  Receipt Date: 20140425
  Transmission Date: 20141212
  Serious: Yes (Hospitalization)
  Sender: FDA-Public Use
  Company Number: None

PATIENT
  Age: 25 Year
  Sex: Female

DRUGS (3)
  1. TOPIRAMATE [Suspect]
     Indication: MIGRAINE
     Dosage: 1 TABLET
     Route: 048
  2. LEVOALBUTEROL [Concomitant]
  3. SUMATRIPTAN [Concomitant]

REACTIONS (1)
  - Exposure via ingestion [None]
